FAERS Safety Report 25976000 (Version 2)
Quarter: 2025Q4

REPORT INFORMATION
  Report Type: Spontaneous
  Country: US (occurrence: US)
  Receive Date: 20251029
  Receipt Date: 20251120
  Transmission Date: 20260118
  Serious: No
  Sender: BIOMARIN
  Company Number: US-BIOMARINAP-US-2025-169635

PATIENT
  Age: 3 Year
  Sex: Male

DRUGS (2)
  1. VOXZOGO [Suspect]
     Active Substance: VOSORITIDE
     Indication: Osteochondrodysplasia
     Dosage: UNK UNK, QD
     Dates: start: 202410
  2. IRON [Concomitant]
     Active Substance: IRON
     Indication: Restless legs syndrome

REACTIONS (1)
  - Hair growth abnormal [Unknown]
